FAERS Safety Report 9140830 (Version 1)
Quarter: 2013Q1

REPORT INFORMATION
  Report Type: Spontaneous
  Country: US (occurrence: US)
  Receive Date: 20130305
  Receipt Date: 20130305
  Transmission Date: 20140127
  Serious: Yes (Death)
  Sender: FDA-Public Use
  Company Number: -ASTRAZENECA-2013SE14332

PATIENT
  Age: 48 Year
  Sex: Female

DRUGS (2)
  1. BRILINTA [Suspect]
     Indication: ACUTE CORONARY SYNDROME
     Route: 048
     Dates: start: 2013, end: 2013
  2. UNKNOWN [Concomitant]

REACTIONS (4)
  - Cardiac arrest [Fatal]
  - Ventricular fibrillation [Fatal]
  - Myocardial infarction [Fatal]
  - Intentional drug misuse [Unknown]
